FAERS Safety Report 8152599-X (Version None)
Quarter: 2012Q1

REPORT INFORMATION
  Report Type: 
  Country: None (occurrence: None)
  Receive Date: 20120221
  Receipt Date: 20120215
  Transmission Date: 20120608
  Serious: No
  Sender: FDA-Public Use
  Company Number: US-B.I. PHARMACEUTICALS,INC./RIDGEFIELD-2012-BP-00015BP

PATIENT
  Sex: Female

DRUGS (20)
  1. ZETIA [Concomitant]
  2. DIAZEPAM [Concomitant]
  3. PROZAC [Concomitant]
     Indication: ANXIETY
     Dates: start: 19960101
  4. LASIX [Concomitant]
     Indication: FLUID RETENTION
     Dates: start: 20010101
  5. ASPIRIN [Concomitant]
     Dosage: 81 MG
  6. MIRAPEX [Suspect]
     Dosage: 1 MG
     Route: 048
     Dates: start: 20120101
  7. CARBIDOPA [Concomitant]
     Indication: DRUG DEPENDENCE
     Dosage: 25 MG
     Route: 048
     Dates: start: 20110101
  8. KLONOPIN [Concomitant]
     Indication: DRUG DEPENDENCE
     Dates: start: 20110101
  9. LAMOTRIGINE [Concomitant]
  10. POTASSIUM CHLORIDE [Concomitant]
  11. BACLOFEN [Concomitant]
  12. DIGOXIN [Concomitant]
     Indication: ATRIAL FIBRILLATION
     Dates: start: 20030101
  13. PLAVIX [Concomitant]
     Indication: BLOOD CHOLESTEROL INCREASED
     Dosage: 75 MG
     Route: 048
     Dates: start: 20010101
  14. THYROXIN [Concomitant]
  15. SPIRONOLACTONE [Concomitant]
  16. METAXALONE [Concomitant]
     Indication: RESTLESS LEGS SYNDROME
     Dates: start: 20110101
  17. MIRAPEX [Suspect]
     Indication: RESTLESS LEGS SYNDROME
     Dosage: 1.5 MG
     Route: 048
     Dates: start: 20060101, end: 20111201
  18. FLOVENT [Concomitant]
  19. ATENOLOL [Concomitant]
     Indication: CARDIAC DISORDER
     Dosage: 25 MG
     Route: 048
     Dates: start: 20030101
  20. AMBIEN [Concomitant]
     Indication: INSOMNIA
     Dosage: 12.5 MG
     Route: 048
     Dates: start: 20030101

REACTIONS (6)
  - CONDITION AGGRAVATED [None]
  - PANIC REACTION [None]
  - COMPULSIVE SHOPPING [None]
  - FEAR [None]
  - WITHDRAWAL SYNDROME [None]
  - EMOTIONAL DISTRESS [None]
